APPROVED DRUG PRODUCT: FESOTERODINE FUMARATE
Active Ingredient: FESOTERODINE FUMARATE
Strength: 4MG
Dosage Form/Route: TABLET, EXTENDED RELEASE;ORAL
Application: A204792 | Product #001 | TE Code: AB
Applicant: HETERO LABS LTD UNIT V
Approved: Jan 9, 2024 | RLD: No | RS: No | Type: RX